FAERS Safety Report 6839217-5 (Version None)
Quarter: 2010Q3

REPORT INFORMATION
  Report Type: 
  Country: None (occurrence: None)
  Receive Date: 20100708
  Receipt Date: 20100628
  Transmission Date: 20110219
  Serious: Yes (Other)
  Sender: FDA-Public Use
  Company Number: TRP_07079_2010

PATIENT
  Age: 41 Year
  Sex: Female

DRUGS (2)
  1. RIBAVIRIN [Suspect]
     Indication: HEPATITIS C
     Dosage: (600 MG, DAILY)
     Dates: start: 20060601, end: 20061101
  2. PEG-INTRON [Suspect]
     Indication: HEPATITIS C
     Dosage: (1.5 ?G/KG  1X/WEEK)
     Dates: start: 20060601, end: 20061101

REACTIONS (2)
  - DIARRHOEA HAEMORRHAGIC [None]
  - POUCHITIS [None]
